FAERS Safety Report 19769187 (Version 1)
Quarter: 2021Q3

REPORT INFORMATION
  Report Type: Spontaneous
  Country: DE (occurrence: DE)
  Receive Date: 20210831
  Receipt Date: 20210831
  Transmission Date: 20211014
  Serious: Yes (Death, Hospitalization)
  Sender: FDA-Public Use
  Company Number: DE-ACCORD-237067

PATIENT
  Age: 84 Year
  Sex: Female

DRUGS (18)
  1. MCP?1A PHARMA [Concomitant]
     Dosage: 10 MG, IF NECESSARY MAX 3 DAILY, TABLETS
     Route: 048
  2. CETIRIZINE [Concomitant]
     Active Substance: CETIRIZINE HYDROCHLORIDE
     Dosage: 10 MG, IN SLEEP DISORDERS, TABLETS
     Route: 048
  3. ZOLPIDEM [Concomitant]
     Active Substance: ZOLPIDEM TARTRATE
     Dosage: 10 MG, IF NECESSARY, TABLETS
     Route: 048
  4. TILIDINE RETARD 1 A PHARMA [Concomitant]
     Dosage: 4/50 MG, 1?0?1?0, TABLETS
     Route: 048
  5. AMIODARONE [Concomitant]
     Active Substance: AMIODARONE
     Dosage: 200 MG, 1?0?0?0, TABLETS
     Route: 048
  6. DEKRISTOL [Concomitant]
     Active Substance: CHOLECALCIFEROL
     Dosage: 20,000 IU, 0?1?0?0, CAPSULES
     Route: 048
  7. RUPATADINE/RUPATADINE FUMARATE [Concomitant]
     Active Substance: RUPATADINE FUMARATE
     Dosage: 10 MG, 1?0?0?0, TABLETS
     Route: 048
  8. METAMIZOLE SODIUM [Concomitant]
     Active Substance: METAMIZOLE SODIUM
     Dosage: 500 MG / ML, MAX FOUR TIMES TWENTY DROPS PER DAY, DROPS
     Route: 048
  9. APIXABAN [Suspect]
     Active Substance: APIXABAN
     Indication: PRODUCT USED FOR UNKNOWN INDICATION
     Dosage: 5 MG, 0.5?0?0.5?0, TABLETS
     Route: 048
  10. LAXOBERAL [Concomitant]
     Active Substance: SODIUM PICOSULFATE
     Dosage: 7.5 MG / ML, 1?0?1?0, LAXATIVE DROPS
     Route: 048
  11. B12 ANKERMANN [Concomitant]
     Dosage: 1?0?0?0, TABLETS
     Route: 048
  12. AMOXICILLIN HEUMANN [Concomitant]
     Dosage: 750 MG, 1?1?1?0, TABLETS
     Route: 048
  13. PRAMIPEXOLE/PRAMIPEXOLE DIHYDROCHLORIDE [Concomitant]
     Active Substance: PRAMIPEXOLE DIHYDROCHLORIDE
     Dosage: 0.087 MG, 0?0?1?0, TABLETS
     Route: 048
  14. IPRAMOL TEVA [Concomitant]
     Dosage: 0.5/ 2.5 MG, 1?0?1?0, METERED DOSE INHALER
     Route: 055
  15. INDACATEROL [Concomitant]
     Active Substance: INDACATEROL
     Dosage: 150/ 320 MICROGRAM, 0?0?1?0, CAPSULES FOR INHALATION
     Route: 055
  16. TORASEMIDE [Concomitant]
     Active Substance: TORSEMIDE
     Dosage: 10 MG, 2?0?0?0, TABLETS
     Route: 048
  17. EPLERENONE. [Concomitant]
     Active Substance: EPLERENONE
     Dosage: 25 MG, 1?0?0?0, TABLETS
     Route: 048
  18. ROPINIROLE/ROPINIROLE HYDROCHLORIDE [Concomitant]
     Active Substance: ROPINIROLE HYDROCHLORIDE
     Dosage: 2 MG, 0?0?1?0, TABLETS
     Route: 048

REACTIONS (2)
  - Chest pain [Unknown]
  - Abdominal pain [Unknown]

NARRATIVE: CASE EVENT DATE: 20210606
